FAERS Safety Report 10398227 (Version 1)
Quarter: 2014Q1

REPORT INFORMATION
  Report Type: Spontaneous
  Country: US (occurrence: None)
  Receive Date: 20130703
  Receipt Date: 20130703
  Transmission Date: 20141002
  Serious: Yes (Death)
  Sender: FDA-Public Use
  Company Number: 049266

PATIENT
  Age: 61 Year
  Sex: Male

DRUGS (3)
  1. ACETAMINOPHEN W/ HYDROCODONE [Suspect]
     Route: 048
  2. ATENOLOL [Suspect]
     Route: 048
  3. OXYCODONE [Suspect]
     Route: 048

REACTIONS (1)
  - Completed suicide [None]
